FAERS Safety Report 8118025-1 (Version None)
Quarter: 2012Q1

REPORT INFORMATION
  Report Type: 
  Country: None (occurrence: None)
  Receive Date: 20120207
  Receipt Date: 20120127
  Transmission Date: 20120608
  Serious: Yes (Hospitalization, Other)
  Sender: FDA-Public Use
  Company Number: US-GENZYME-RENA-1001445

PATIENT

DRUGS (3)
  1. RENVELA [Suspect]
     Indication: RENAL FAILURE CHRONIC
     Dosage: 0.8 G, BID
     Route: 048
     Dates: start: 20111101, end: 20111201
  2. RENVELA [Suspect]
     Indication: HYPERPHOSPHATAEMIA
     Dosage: 0.8 G, BID
     Route: 048
     Dates: start: 20120101
  3. RENAGEL [Suspect]
     Indication: HYPERPHOSPHATAEMIA
     Dosage: UNK
     Route: 065
     Dates: start: 20090101

REACTIONS (3)
  - DIARRHOEA [None]
  - HOSPITALISATION [None]
  - DIARRHOEA HAEMORRHAGIC [None]
